FAERS Safety Report 26012748 (Version 1)
Quarter: 2025Q4

REPORT INFORMATION
  Report Type: Spontaneous
  Country: EU (occurrence: EU)
  Receive Date: 20251107
  Receipt Date: 20251107
  Transmission Date: 20260119
  Serious: Yes (Other)
  Sender: PFIZER
  Company Number: EU-PFIZER INC-202500219201

PATIENT
  Age: 9 Decade
  Sex: Male

DRUGS (1)
  1. ALDACTONE [Suspect]
     Active Substance: SPIRONOLACTONE

REACTIONS (1)
  - Macular degeneration [Unknown]

NARRATIVE: CASE EVENT DATE: 20230101
